FAERS Safety Report 5242034-3 (Version None)
Quarter: 2007Q1

REPORT INFORMATION
  Report Type: 
  Country: None (occurrence: None)
  Receive Date: 20070212
  Receipt Date: 20070126
  Transmission Date: 20070707
  Serious: Yes (Other)
  Sender: FDA-Public Use
  Company Number: SPV1-2007-00401

PATIENT
  Age: 46 Year
  Sex: Female
  Weight: 68 kg

DRUGS (6)
  1. ADDERALL XR 15 [Suspect]
     Indication: ATTENTION DEFICIT/HYPERACTIVITY DISORDER
     Dosage: 30 MG, 1X/DAY: QD, ORAL
     Route: 048
     Dates: start: 20050101, end: 20070125
  2. ADDERALL XR 15 [Suspect]
     Indication: NARCOLEPSY
     Dosage: 30 MG, 1X/DAY: QD, ORAL
     Route: 048
     Dates: start: 20050101, end: 20070125
  3. ADDERALL XR 15 [Suspect]
     Indication: ATTENTION DEFICIT/HYPERACTIVITY DISORDER
     Dosage: 30 MG, 1X/DAY: QD, ORAL
     Route: 048
     Dates: start: 20070126
  4. ADDERALL XR 15 [Suspect]
     Indication: NARCOLEPSY
     Dosage: 30 MG, 1X/DAY: QD, ORAL
     Route: 048
     Dates: start: 20070126
  5. XANAX [Concomitant]
  6. HYDROCODONE (HYDROCODONE) [Concomitant]

REACTIONS (9)
  - BLOOD PRESSURE INCREASED [None]
  - BONE NEOPLASM [None]
  - CHEST PAIN [None]
  - FEELING ABNORMAL [None]
  - FIBROMYALGIA [None]
  - HEART RATE INCREASED [None]
  - HYPERSOMNIA [None]
  - HYPOKINESIA [None]
  - PELVIC NEOPLASM [None]
